FAERS Safety Report 20660091 (Version 17)
Quarter: 2022Q4

REPORT INFORMATION
  Report Type: Report from Study
  Country: MX (occurrence: MX)
  Receive Date: 20220331
  Receipt Date: 20221228
  Transmission Date: 20230112
  Serious: Yes (Other)
  Sender: FDA-Public Use
  Company Number: MX-TAKEDA-2022TUS019637

PATIENT
  Age: 38 Year
  Sex: Female

DRUGS (3)
  1. BRENTUXIMAB VEDOTIN [Suspect]
     Active Substance: BRENTUXIMAB VEDOTIN
     Indication: Hodgkin^s disease
     Dosage: 40 MILLIGRAM, Q3WEEKS
     Route: 042
     Dates: start: 20211201
  2. BRENTUXIMAB VEDOTIN [Suspect]
     Active Substance: BRENTUXIMAB VEDOTIN
     Dosage: 60 MILLIGRAM
     Route: 042
     Dates: start: 202112
  3. BRENTUXIMAB VEDOTIN [Suspect]
     Active Substance: BRENTUXIMAB VEDOTIN
     Dosage: 100 MILLIGRAM
     Route: 042
     Dates: start: 20220511

REACTIONS (30)
  - Hypersensitivity [Not Recovered/Not Resolved]
  - Pain in extremity [Not Recovered/Not Resolved]
  - Hypoaesthesia [Not Recovered/Not Resolved]
  - Neuropathy peripheral [Not Recovered/Not Resolved]
  - Lymphoma [Not Recovered/Not Resolved]
  - Loss of personal independence in daily activities [Recovering/Resolving]
  - Stress [Not Recovered/Not Resolved]
  - Pain [Not Recovered/Not Resolved]
  - Abdominal pain upper [Recovered/Resolved]
  - Dyspepsia [Not Recovered/Not Resolved]
  - Abdominal distension [Not Recovered/Not Resolved]
  - Abdominal discomfort [Recovering/Resolving]
  - Gastritis [Recovered/Resolved]
  - Nasopharyngitis [Recovering/Resolving]
  - Hyperaesthesia [Not Recovered/Not Resolved]
  - Asthenia [Recovered/Resolved]
  - Cough [Not Recovered/Not Resolved]
  - Insomnia [Not Recovered/Not Resolved]
  - Abdominal pain [Not Recovered/Not Resolved]
  - Vomiting [Recovering/Resolving]
  - Nausea [Recovering/Resolving]
  - Fatigue [Recovering/Resolving]
  - Malaise [Not Recovered/Not Resolved]
  - Irritable bowel syndrome [Unknown]
  - Depression [Unknown]
  - Hyperhidrosis [Not Recovered/Not Resolved]
  - Colitis [Not Recovered/Not Resolved]
  - Constipation [Unknown]
  - Diarrhoea [Recovering/Resolving]
  - Chills [Not Recovered/Not Resolved]

NARRATIVE: CASE EVENT DATE: 20211201
